FAERS Safety Report 6964560-9 (Version None)
Quarter: 2010Q3

REPORT INFORMATION
  Report Type: 
  Country: None (occurrence: None)
  Receive Date: 20100903
  Receipt Date: 20100827
  Transmission Date: 20110219
  Serious: Yes (Hospitalization)
  Sender: FDA-Public Use
  Company Number: US-ASTRAZENECA-2007UW25203

PATIENT
  Age: 53 Year
  Sex: Female
  Weight: 67.1 kg

DRUGS (5)
  1. SEROQUEL [Suspect]
     Indication: ANXIETY
     Dosage: 200 MG TO 400 MG
     Route: 048
     Dates: start: 20050401
  2. SEROQUEL [Suspect]
     Indication: DEPRESSION
     Dosage: 200 MG TO 400 MG
     Route: 048
     Dates: start: 20050401
  3. SEROQUEL [Suspect]
     Indication: BIPOLAR DISORDER
     Dosage: 200 MG TO 400 MG
     Route: 048
     Dates: start: 20050401
  4. SEROQUEL [Suspect]
     Indication: SCHIZOAFFECTIVE DISORDER
     Dosage: 200 MG TO 400 MG
     Route: 048
     Dates: start: 20050401
  5. ABILIFY [Concomitant]

REACTIONS (9)
  - DIABETIC COMPLICATION [None]
  - FACE INJURY [None]
  - FIBROMYALGIA [None]
  - GASTROINTESTINAL DISORDER [None]
  - GASTROOESOPHAGEAL REFLUX DISEASE [None]
  - INTESTINAL OBSTRUCTION [None]
  - OSTEOPOROSIS [None]
  - SCAR EXCISION [None]
  - TYPE 2 DIABETES MELLITUS [None]
